FAERS Safety Report 14098394 (Version 2)
Quarter: 2017Q4

REPORT INFORMATION
  Report Type: Spontaneous
  Country: CH (occurrence: CH)
  Receive Date: 20171017
  Receipt Date: 20171205
  Transmission Date: 20180321
  Serious: Yes (Other)
  Sender: FDA-Public Use
  Company Number: CH-BAYER-2017-191470

PATIENT
  Sex: Male

DRUGS (11)
  1. XOFIGO [Suspect]
     Active Substance: RADIUM RA-223 DICHLORIDE
     Indication: HORMONE-REFRACTORY PROSTATE CANCER
     Dosage: 3290 MBQ, UNK
     Route: 042
     Dates: start: 20170811, end: 20170811
  2. PREDNISON [Concomitant]
     Active Substance: PREDNISONE
     Dosage: 5 MG, UNK
     Route: 048
     Dates: start: 20170210
  3. MORPHIN [Concomitant]
     Active Substance: MORPHINE
     Indication: PAIN
     Dosage: 20 DROPS, 1-2 X WEEK
  4. ESCITALOPRAM [Concomitant]
     Active Substance: ESCITALOPRAM OXALATE
  5. XOFIGO [Suspect]
     Active Substance: RADIUM RA-223 DICHLORIDE
     Indication: HORMONE-REFRACTORY PROSTATE CANCER
     Dosage: UNK
  6. PANTOPRAZOLE [Concomitant]
     Active Substance: PANTOPRAZOLE
  7. ZYTIGA [Concomitant]
     Active Substance: ABIRATERONE ACETATE
     Dosage: 0-0-1
     Dates: start: 20170210
  8. XOFIGO [Suspect]
     Active Substance: RADIUM RA-223 DICHLORIDE
     Indication: PROSTATE CANCER METASTATIC
     Dosage: 3205 MBQ, ONCE
     Route: 042
     Dates: start: 20170906, end: 20170906
  9. FENTANYL. [Concomitant]
     Active Substance: FENTANYL
     Indication: PAIN
     Dosage: 50 ?G, UNK
  10. IBUPROFEN BAYER [Concomitant]
     Indication: PAIN
  11. TOTOLIN [Concomitant]
     Indication: PAIN

REACTIONS (3)
  - Paraesthesia oral [None]
  - Fatigue [None]
  - Thrombocytopenia [None]

NARRATIVE: CASE EVENT DATE: 201709
